FAERS Safety Report 9521350 (Version 1)
Quarter: 2013Q1

REPORT INFORMATION
  Report Type: Spontaneous
  Country: US (occurrence: None)
  Receive Date: 20130305
  Receipt Date: 20130305
  Transmission Date: 20140127
  Serious: Yes (Hospitalization)
  Sender: FDA-Public Use
  Company Number: 163-21880-12022828

PATIENT
  Age: 81 Year
  Sex: Male

DRUGS (2)
  1. REVLIMID [Suspect]
     Indication: PLASMA CELL MYELOMA
     Dosage: 10 MG, 2 WEEKS ON, 1 WEEK OFF, PO
     Route: 048
     Dates: start: 20120105, end: 20120212
  2. ANTIHYPERTENSIVES (ANTIHYPERTENSIVES) (UNKNOWN) [Concomitant]

REACTIONS (2)
  - Bradycardia [None]
  - Syncope [None]
